FAERS Safety Report 4741360-1 (Version None)
Quarter: 2005Q3

REPORT INFORMATION
  Report Type: 
  Country: None (occurrence: None)
  Receive Date: 20050808
  Receipt Date: 20050722
  Transmission Date: 20060218
  Serious: Yes (Other)
  Sender: FDA-Public Use
  Company Number: USA0506100899

PATIENT
  Age: 35 Year
  Sex: Male
  Weight: 79 kg

DRUGS (2)
  1. CYMBALTA [Suspect]
     Indication: DEPRESSION
     Dosage: 90 MG DAY
     Route: 048
     Dates: start: 20050501
  2. SERZONE [Concomitant]

REACTIONS (1)
  - HYPERTENSION [None]
